FAERS Safety Report 8192928-4 (Version None)
Quarter: 2012Q1

REPORT INFORMATION
  Report Type: 
  Country: None (occurrence: None)
  Receive Date: 20120308
  Receipt Date: 20120227
  Transmission Date: 20120608
  Serious: Yes (Other)
  Sender: FDA-Public Use
  Company Number: IT-BRISTOL-MYERS SQUIBB COMPANY-16421935

PATIENT
  Age: 67 Year
  Sex: Male

DRUGS (1)
  1. IPILIMUMAB [Suspect]
     Indication: MALIGNANT MELANOMA
     Dosage: RECEIVED 3 TOTAL DOSES OF IPILIMUMAB
     Dates: start: 20120103, end: 20120213

REACTIONS (2)
  - NEUTROPENIA [None]
  - NEOPLASM MALIGNANT [None]
